FAERS Safety Report 16724205 (Version 3)
Quarter: 2019Q3

REPORT INFORMATION
  Report Type: Spontaneous
  Country: ES (occurrence: ES)
  Receive Date: 20190821
  Receipt Date: 20190902
  Transmission Date: 20191005
  Serious: Yes (Other)
  Sender: FDA-Public Use
  Company Number: ES-PFIZER INC-2019358874

PATIENT
  Age: 74 Year
  Sex: Female

DRUGS (6)
  1. RANEXA [Concomitant]
     Active Substance: RANOLAZINE
     Indication: CARDIAC HYPERTROPHY
     Dosage: 375 MG, 2X/DAY (IN THE MORNING AND AT NIGHT)
  2. SINTROM [Concomitant]
     Active Substance: ACENOCOUMAROL
     Indication: CARDIAC HYPERTROPHY
     Dosage: 1 DF, 1X/DAY (IN THE AFTERNOON)
  3. LISINOPRIL. [Concomitant]
     Active Substance: LISINOPRIL
     Indication: HYPERTENSION
     Dosage: 1 DF, 1X/DAY (IN THE MORNING)
  4. TRANGOREX [Suspect]
     Active Substance: AMIODARONE HYDROCHLORIDE
     Indication: CARDIAC HYPERTROPHY
     Dosage: 200 MG, 1X/DAY (IN THE MORNING)
     Route: 048
     Dates: end: 20190809
  5. TENORMIN [Concomitant]
     Active Substance: ATENOLOL
     Indication: CARDIAC HYPERTROPHY
     Dosage: 0.5 DF, 2X/DAY (HALF TABLET IN THE MORNING AND HALF TABLET AT NIGHT)
  6. LORAZEPAM. [Concomitant]
     Active Substance: LORAZEPAM
     Indication: NERVOUSNESS
     Dosage: UNK (SPORADIC USE)

REACTIONS (4)
  - Cold sweat [Recovered/Resolved]
  - Palpitations [Recovered/Resolved]
  - Tremor [Recovered/Resolved]
  - Discomfort [Recovered/Resolved]

NARRATIVE: CASE EVENT DATE: 20190806
